FAERS Safety Report 5672095-9 (Version None)
Quarter: 2008Q2

REPORT INFORMATION
  Report Type: 
  Country: None (occurrence: None)
  Receive Date: 20080219
  Receipt Date: 20071211
  Transmission Date: 20081010
  Serious: No
  Sender: FDA-Public Use
  Company Number: TPA2007A02491

PATIENT
  Age: 90 Year
  Sex: Female

DRUGS (2)
  1. ROZEREM [Suspect]
     Indication: INSOMNIA
     Dosage: ONE DOSE AT HS, PER ORAL
     Route: 048
     Dates: start: 20071016
  2. EXTRA STRENGTH TYLENOL PM (DIPHENHYDRAMINE, PARACETAMOL) (TABLETS) [Suspect]
     Indication: INSOMNIA
     Dosage: ONE DOSE AT HS, PER ORAL
     Route: 048
     Dates: start: 20071016

REACTIONS (3)
  - INSOMNIA [None]
  - MIDDLE INSOMNIA [None]
  - SOMNOLENCE [None]
